FAERS Safety Report 21708230 (Version 1)
Quarter: 2022Q4

REPORT INFORMATION
  Report Type: Report from Study
  Country: IE (occurrence: IE)
  Receive Date: 20221210
  Receipt Date: 20221210
  Transmission Date: 20230113
  Serious: Yes (Other)
  Sender: FDA-Public Use
  Company Number: IE-AMGEN-IRLSL2022211720

PATIENT
  Age: 59 Year
  Sex: Female

DRUGS (8)
  1. NEULASTA [Suspect]
     Active Substance: PEGFILGRASTIM
     Indication: Product used for unknown indication
     Dosage: 6 MILLIGRAM, AS PER PRESCRIPTION
     Route: 058
  2. CARBAMAZEPINE [Concomitant]
     Active Substance: CARBAMAZEPINE
     Dosage: 200 MILLIGRAM, QD
     Route: 050
  3. XANAX [Concomitant]
     Active Substance: ALPRAZOLAM
     Dosage: 125 MICROGRAM BD
     Route: 050
  4. EMEND [Concomitant]
     Active Substance: APREPITANT
     Dosage: 125 MILLIGRAM AS PER CHEMO PRESCRIPTION
     Route: 050
  5. LERCANIDIPINE [Concomitant]
     Active Substance: LERCANIDIPINE
     Dosage: 10 MILLIGRAM ONCE DAILY
     Route: 050
  6. CYCLIZINE [Concomitant]
     Active Substance: CYCLIZINE
     Dosage: 50 MILLIGRAM T.D.S
     Route: 050
  7. OLANZAPINE [Concomitant]
     Active Substance: OLANZAPINE
     Dosage: 5 MILLIGRAM AS PER CHEMO PRESCRIPTION
     Route: 050
  8. MAXOLON [Concomitant]
     Active Substance: METOCLOPRAMIDE HYDROCHLORIDE
     Dosage: 10 MILLIGRAM, TID
     Route: 050

REACTIONS (9)
  - Syncope [Recovering/Resolving]
  - Chest pain [Recovering/Resolving]
  - Vision blurred [Recovering/Resolving]
  - Hypotension [Recovered/Resolved]
  - Cold sweat [Recovering/Resolving]
  - Nausea [Recovering/Resolving]
  - Incontinence [Recovering/Resolving]
  - Arthralgia [Recovering/Resolving]
  - Pain in extremity [Recovering/Resolving]

NARRATIVE: CASE EVENT DATE: 20221202
